FAERS Safety Report 7527306-1 (Version None)
Quarter: 2011Q2

REPORT INFORMATION
  Report Type: 
  Country: None (occurrence: None)
  Receive Date: 20110607
  Receipt Date: 20080816
  Transmission Date: 20111010
  Serious: Yes (Other)
  Sender: FDA-Public Use
  Company Number: US-BAYER-200831360NA

PATIENT
  Sex: Male
  Weight: 82 kg

DRUGS (16)
  1. INSULIN [Concomitant]
     Dosage: 15 U, UNK
     Route: 042
     Dates: start: 20060804, end: 20060804
  2. VERSED [Concomitant]
     Dosage: 7 MG, UNK
     Route: 042
     Dates: start: 20060804, end: 20060804
  3. LEVOPHED [Concomitant]
     Dosage: UNK
     Dates: start: 20060503
  4. NEO-SYNEPHRINE [Concomitant]
     Dosage: UNK
     Route: 042
     Dates: start: 20060804, end: 20060804
  5. DOPAMINE HCL [Concomitant]
     Dosage: UNK
     Dates: start: 20060503
  6. TRASYLOL [Suspect]
     Dosage: 50 ML/HOUR
     Route: 042
     Dates: start: 20060804, end: 20060804
  7. ANCEF [Concomitant]
     Dosage: 1 G, UNK
     Route: 042
     Dates: start: 20060804, end: 20060804
  8. TRASYLOL [Suspect]
     Indication: PULMONARY VALVE REPLACEMENT
     Dosage: 200 ML
     Route: 042
     Dates: start: 20060804, end: 20060804
  9. DOPAMINE HCL [Concomitant]
     Dosage: UNK
     Route: 042
     Dates: start: 20060804, end: 20060804
  10. MANNITOL [Concomitant]
     Dosage: 25 G, UNK
     Route: 042
     Dates: start: 20060804, end: 20060804
  11. ZINACEF [Concomitant]
     Dosage: 1 G, UNK
     Route: 042
     Dates: start: 20060804, end: 20060804
  12. HEPARIN [Concomitant]
     Dosage: 17000 UNITS
     Route: 042
     Dates: start: 20060804, end: 20060804
  13. TRASYLOL [Suspect]
     Dosage: 1 ML
     Dates: start: 20060804, end: 20060804
  14. VANCOMYCIN [Concomitant]
     Dosage: UNK
     Dates: start: 20060503
  15. NORVASC [Concomitant]
     Dosage: 10 MG, QD
     Route: 048
  16. PROTAMINE SULFATE [Concomitant]
     Dosage: 350 MG, UNK
     Route: 042
     Dates: start: 20060804, end: 20060804

REACTIONS (6)
  - DEPRESSION [None]
  - ANXIETY [None]
  - RENAL FAILURE [None]
  - FEAR [None]
  - INJURY [None]
  - PAIN [None]
